FAERS Safety Report 6288807-X (Version None)
Quarter: 2009Q3

REPORT INFORMATION
  Report Type: 
  Country: None (occurrence: None)
  Receive Date: 20090729
  Receipt Date: 20090717
  Transmission Date: 20100115
  Serious: Yes (Other)
  Sender: FDA-Public Use
  Company Number: BR-PFIZER INC-2009242911

PATIENT
  Age: 83 Year

DRUGS (6)
  1. EPELIN [Suspect]
     Indication: CONVULSION
     Dosage: 100 MG/5 ML
     Dates: start: 20030101, end: 20090101
  2. HIDANTAL [Suspect]
     Dosage: UNK
     Dates: start: 20090101
  3. NEURONTIN [Concomitant]
     Dosage: UNK
  4. RIVOTRIL [Concomitant]
     Dosage: UNK
  5. LASIX [Concomitant]
     Dosage: UNK
  6. SYNTHROID [Concomitant]
     Dosage: 150 MG

REACTIONS (2)
  - CONVULSION [None]
  - DRUG INTOLERANCE [None]
